FAERS Safety Report 6198482-0 (Version None)
Quarter: 2009Q2

REPORT INFORMATION
  Report Type: 
  Country: None (occurrence: None)
  Receive Date: 20090521
  Receipt Date: 20090513
  Transmission Date: 20091009
  Serious: Yes (Hospitalization)
  Sender: FDA-Public Use
  Company Number: PHHY2009JP15856

PATIENT
  Age: 50 Year
  Sex: Female

DRUGS (2)
  1. ZADITEN [Suspect]
     Dosage: UNK
     Route: 048
     Dates: start: 20090301, end: 20090422
  2. DRUG THERAPY NOS [Concomitant]
     Dates: end: 20090422

REACTIONS (1)
  - LIVER DISORDER [None]
